FAERS Safety Report 23251980 (Version 2)
Quarter: 2024Q2

REPORT INFORMATION
  Report Type: Report from Study
  Country: US (occurrence: US)
  Receive Date: 20231201
  Receipt Date: 20240422
  Transmission Date: 20240716
  Serious: Yes (Other)
  Sender: FDA-Public Use
  Company Number: US-AMGEN-USASL2023160749

PATIENT
  Age: 54 Year
  Sex: Male

DRUGS (1)
  1. ENBREL [Suspect]
     Active Substance: ETANERCEPT
     Indication: Product used for unknown indication
     Dosage: 50 MILLIGRAM
     Route: 065
     Dates: start: 20211021

REACTIONS (6)
  - Cerebrovascular accident [Unknown]
  - Condition aggravated [Not Recovered/Not Resolved]
  - Product administration interrupted [Unknown]
  - Illness [Unknown]
  - Hypoacusis [Unknown]
  - Speech disorder [Unknown]

NARRATIVE: CASE EVENT DATE: 20230101
